FAERS Safety Report 8170827-1 (Version None)
Quarter: 2012Q1

REPORT INFORMATION
  Report Type: 
  Country: None (occurrence: None)
  Receive Date: 20120104
  Receipt Date: 20111012
  Transmission Date: 20120608
  Serious: No
  Sender: FDA-Public Use
  Company Number: 2011HGS-002634

PATIENT
  Age: 47 Year
  Sex: Female
  Weight: 117.9352 kg

DRUGS (11)
  1. BENLYSTA [Suspect]
     Indication: SYSTEMIC LUPUS ERYTHEMATOSUS
     Dosage: INTRAVENOUS DRIP
     Route: 041
     Dates: start: 20110930
  2. LIBRAX (NIRVAXAL) (CHLORDIAZEPOXIDE, CLIDINIUM BROMIDE) [Concomitant]
  3. CELLCEPT (MYCOPHENOLATE MOFETIL) (MYCOPHENOLATE MOFETIL) [Concomitant]
  4. NEXIUM [Concomitant]
  5. MAGNESIUM (MAGNESIUM) (MAGNESIUM) [Concomitant]
  6. CALCIUM (CALCIUM) (CALCIUM) [Concomitant]
  7. CALCITRIOL (CALCITRIOL) (CALCIITRIOL) [Concomitant]
  8. FOLIC ACID [Concomitant]
  9. EPIPEN (EPINEPHRINE) (EPINEPHRINE) [Concomitant]
  10. PLAQUENIL (HYDROXYCHLOROQUINE SULFATE) (HYDROXYCHLOROQUINE SULFATE) [Concomitant]
  11. PREDNISONE [Concomitant]

REACTIONS (4)
  - INCREASED APPETITE [None]
  - PAIN [None]
  - SYSTEMIC LUPUS ERYTHEMATOSUS [None]
  - WEIGHT INCREASED [None]
